FAERS Safety Report 8340123-8 (Version None)
Quarter: 2012Q2

REPORT INFORMATION
  Report Type: 
  Country: None (occurrence: None)
  Receive Date: 20120507
  Receipt Date: 20120426
  Transmission Date: 20120825
  Serious: Yes (Hospitalization)
  Sender: FDA-Public Use
  Company Number: NL-ASTRAZENECA-2012SE27270

PATIENT
  Age: 40 Year
  Sex: Female

DRUGS (6)
  1. CETIRIZINE [Suspect]
     Indication: SEASONAL ALLERGY
     Route: 048
     Dates: start: 20110601, end: 20110701
  2. METOPROLOL SUCCINATE [Suspect]
     Indication: TACHYCARDIA
     Route: 048
     Dates: start: 20110201, end: 20110801
  3. LIVOCAB [Concomitant]
     Dosage: 0.5 MG/ML, 1 DF, THREE TIMES A DAY
     Route: 047
     Dates: start: 20080101
  4. PAROXETINE HCL [Concomitant]
     Route: 048
     Dates: start: 20040601
  5. BECLOMETASON [Concomitant]
     Route: 045
     Dates: start: 19860101
  6. ZOMIG [Concomitant]
     Dosage: THREE TIMES  A WEEK
     Route: 048
     Dates: start: 19980101

REACTIONS (2)
  - DYSPNOEA [None]
  - TACHYCARDIA [None]
